FAERS Safety Report 11490415 (Version 1)
Quarter: 2015Q3

REPORT INFORMATION
  Report Type: Spontaneous
  Country: US (occurrence: US)
  Receive Date: 20150910
  Receipt Date: 20150910
  Transmission Date: 20151125
  Serious: No
  Sender: FDA-Public Use
  Company Number: US-TEVA-590159USA

PATIENT

DRUGS (1)
  1. DULOXETINE. [Suspect]
     Active Substance: DULOXETINE
     Indication: FIBROMYALGIA
     Route: 065

REACTIONS (9)
  - Negative thoughts [Unknown]
  - Disturbance in attention [Unknown]
  - Dizziness [Unknown]
  - Visual impairment [Unknown]
  - Abdominal discomfort [Unknown]
  - Hyperhidrosis [Unknown]
  - Paraesthesia [Unknown]
  - Pain [Unknown]
  - Balance disorder [Unknown]
